FAERS Safety Report 5933390-9 (Version None)
Quarter: 2008Q4

REPORT INFORMATION
  Report Type: 
  Country: None (occurrence: None)
  Receive Date: 20081023
  Receipt Date: 20081016
  Transmission Date: 20090506
  Serious: Yes (Hospitalization)
  Sender: FDA-Public Use
  Company Number: 20080296

PATIENT
  Age: 62 Year
  Sex: Female

DRUGS (8)
  1. CALCIUM GLUCONATE [Suspect]
     Indication: MINERAL SUPPLEMENTATION
     Dosage: 20 ML ONCE INTRAVENOUS
     Route: 042
     Dates: start: 20080926
  2. ASCORBIC ACID [Concomitant]
  3. MAGNESIUM SULFATE [Concomitant]
  4. SELENIUM [Concomitant]
  5. CHROMIC CHLORIDE [Concomitant]
  6. MANGANESE SULFATE [Concomitant]
  7. ZINC SULFATE [Concomitant]
  8. SODIUM CHLORIDE 0.9% [Concomitant]

REACTIONS (7)
  - BODY TEMPERATURE INCREASED [None]
  - CHILLS [None]
  - NAUSEA [None]
  - OFF LABEL USE [None]
  - PAIN [None]
  - PLATELET COUNT DECREASED [None]
  - WHITE BLOOD CELL COUNT DECREASED [None]
